FAERS Safety Report 26201776 (Version 1)
Quarter: 2025Q4

REPORT INFORMATION
  Report Type: Spontaneous
  Country: US (occurrence: US)
  Receive Date: 20251226
  Receipt Date: 20251226
  Transmission Date: 20260117
  Serious: No
  Sender: UROGEN PHARMA
  Company Number: US-UROGEN PHARMA LTD.-2025-UGN-000224

PATIENT

DRUGS (5)
  1. ZUSDURI [Suspect]
     Active Substance: MITOMYCIN
     Indication: Product used for unknown indication
     Dosage: 1.33 MG/ML, ONCE A WEEK (INSTILLATION)
     Route: 043
     Dates: start: 20250930, end: 20250930
  2. ZUSDURI [Suspect]
     Active Substance: MITOMYCIN
     Dosage: 1.33 MG/ML, ONCE A WEEK (INSTILLATION)
     Route: 043
     Dates: start: 20251007, end: 20251007
  3. ZUSDURI [Suspect]
     Active Substance: MITOMYCIN
     Dosage: 1.33 MG/ML, ONCE A WEEK (INSTILLATION)
     Route: 043
     Dates: start: 20251014, end: 20251014
  4. ZUSDURI [Suspect]
     Active Substance: MITOMYCIN
     Dosage: 1.33 MG/ML, ONCE A WEEK (INSTILLATION)
     Route: 043
     Dates: start: 20251021, end: 20251021
  5. ZUSDURI [Suspect]
     Active Substance: MITOMYCIN
     Dosage: 1.33 MG/ML, ONCE A WEEK (INSTILLATION)
     Route: 043
     Dates: start: 20251028, end: 20251028

REACTIONS (2)
  - Dysuria [Unknown]
  - Urinary incontinence [Unknown]

NARRATIVE: CASE EVENT DATE: 20251014
